FAERS Safety Report 7198570-6 (Version None)
Quarter: 2010Q4

REPORT INFORMATION
  Report Type: 
  Country: None (occurrence: None)
  Receive Date: 20101227
  Receipt Date: 20101216
  Transmission Date: 20110411
  Serious: Yes (Hospitalization)
  Sender: FDA-Public Use
  Company Number: FR-JNJFOC-20101206722

PATIENT
  Sex: Male
  Weight: 75 kg

DRUGS (2)
  1. HALDOL [Suspect]
     Indication: SCHIZOPHRENIA
     Dosage: DOSE GRADUALLY INCREASED TO REACH 20 MG PER DAY.
     Route: 048
     Dates: start: 20101029, end: 20101114
  2. LOXAPAC [Suspect]
     Indication: SCHIZOPHRENIA
     Dosage: DOSE GRADUALLY INCREASED TO REACH 500 MG PER DAY
     Route: 048
     Dates: start: 20101029, end: 20101114

REACTIONS (4)
  - CONFUSIONAL STATE [None]
  - EXTRAPYRAMIDAL DISORDER [None]
  - HYPERHIDROSIS [None]
  - RHABDOMYOLYSIS [None]
